FAERS Safety Report 7785983-4 (Version None)
Quarter: 2011Q3

REPORT INFORMATION
  Report Type: 
  Country: None (occurrence: None)
  Receive Date: 20110929
  Receipt Date: 20110707
  Transmission Date: 20111222
  Serious: No
  Sender: FDA-Public Use
  Company Number: US-BAYER-2011-060346

PATIENT
  Age: 45 Year
  Sex: Male
  Weight: 76 kg

DRUGS (2)
  1. MULTI-VITAMIN [Concomitant]
  2. ALEVE (CAPLET) [Suspect]
     Indication: HEADACHE
     Dosage: 2 TAB AS NEEDED
     Route: 048
     Dates: start: 20110601, end: 20110706

REACTIONS (1)
  - DRUG INEFFECTIVE [None]
